FAERS Safety Report 10528096 (Version 1)
Quarter: 2014Q4

REPORT INFORMATION
  Report Type: Spontaneous
  Country: US (occurrence: None)
  Receive Date: 20141017
  Receipt Date: 20141017
  Transmission Date: 20150528
  Serious: Yes (Other)
  Sender: FDA-Public Use
  Company Number: None

PATIENT
  Age: 46 Year
  Sex: Male
  Weight: 83.92 kg

DRUGS (2)
  1. NUCYNTA ER [Suspect]
     Active Substance: TAPENTADOL HYDROCHLORIDE
     Indication: FIBROMYALGIA
     Dosage: 1 PILL TWICE DAILY TAKEN BY MOUTH
     Route: 048
     Dates: start: 20140924, end: 20141016
  2. NUCYNTA ER [Suspect]
     Active Substance: TAPENTADOL HYDROCHLORIDE
     Indication: BACK PAIN
     Dosage: 1 PILL TWICE DAILY TAKEN BY MOUTH
     Route: 048
     Dates: start: 20140924, end: 20141016

REACTIONS (9)
  - Nausea [None]
  - Drug withdrawal syndrome [None]
  - Tremor [None]
  - Pain [None]
  - Diarrhoea [None]
  - Drug effect decreased [None]
  - Hyperhidrosis [None]
  - Muscle spasms [None]
  - Pyrexia [None]

NARRATIVE: CASE EVENT DATE: 20140924
